FAERS Safety Report 6731225-8 (Version None)
Quarter: 2010Q2

REPORT INFORMATION
  Report Type: 
  Country: None (occurrence: None)
  Receive Date: 20100517
  Receipt Date: 20100517
  Transmission Date: 20101027
  Serious: No
  Sender: FDA-Public Use
  Company Number: None

PATIENT

DRUGS (3)
  1. METHOTREXATE [Suspect]
  2. CHLORTHALIDONE 15 MG PLUS [Suspect]
  3. CLONIDINE HYDROCHLORIDE 0.1 MG. [Suspect]

REACTIONS (4)
  - DRUG DISPENSING ERROR [None]
  - SOMNOLENCE [None]
  - TABLET ISSUE [None]
  - WRONG DRUG ADMINISTERED [None]
